FAERS Safety Report 7534779-7 (Version None)
Quarter: 2011Q2

REPORT INFORMATION
  Report Type: 
  Country: None (occurrence: None)
  Receive Date: 20110609
  Receipt Date: 20080901
  Transmission Date: 20111010
  Serious: Yes (Other)
  Sender: FDA-Public Use
  Company Number: PHHY2008GB10381

PATIENT
  Sex: Female

DRUGS (1)
  1. CLOZAPINE [Suspect]
     Dosage: UNK

REACTIONS (6)
  - WHITE BLOOD CELL COUNT INCREASED [None]
  - CELL MARKER INCREASED [None]
  - RED BLOOD CELL SEDIMENTATION RATE INCREASED [None]
  - PELVIC INFECTION [None]
  - C-REACTIVE PROTEIN INCREASED [None]
  - PLATELET COUNT INCREASED [None]
